FAERS Safety Report 9407433 (Version 1)
Quarter: 2013Q3

REPORT INFORMATION
  Report Type: Spontaneous
  Country: FR (occurrence: FR)
  Receive Date: 20130718
  Receipt Date: 20130718
  Transmission Date: 20140515
  Serious: Yes (Life-Threatening, Hospitalization)
  Sender: FDA-Public Use
  Company Number: FR-PERRIGO-13FR007067

PATIENT
  Age: 24 Year
  Sex: Female

DRUGS (3)
  1. MORPHINE SULFATE 20 MG/ML 0L8 [Suspect]
     Indication: SUICIDE ATTEMPT
     Dosage: UNK, UNK
     Route: 065
  2. ALCOHOL [Suspect]
     Indication: SUICIDE ATTEMPT
     Dosage: UNK, UNK
     Route: 048
  3. PECFENT [Suspect]
     Indication: SUICIDE ATTEMPT
     Dosage: 400 MCG, THREE TIMES
     Route: 045

REACTIONS (7)
  - Coma [Recovered/Resolved]
  - Oxygen saturation decreased [Recovered/Resolved]
  - Bradypnoea [Recovered/Resolved]
  - Apnoea [Recovered/Resolved]
  - Blood pressure decreased [Recovered/Resolved]
  - Miosis [Recovered/Resolved]
  - Cyanosis [Recovered/Resolved]
